FAERS Safety Report 18267597 (Version 1)
Quarter: 2020Q3

REPORT INFORMATION
  Report Type: Spontaneous
  Country: CN (occurrence: CN)
  Receive Date: 20200915
  Receipt Date: 20200915
  Transmission Date: 20201103
  Serious: Yes (Hospitalization)
  Sender: FDA-Public Use
  Company Number: CN-BAXTER-2020BAX018853

PATIENT
  Age: 45 Year
  Sex: Female
  Weight: 48 kg

DRUGS (12)
  1. 0.9% SODIUM CHLORIDE INJECTION [Suspect]
     Active Substance: SODIUM CHLORIDE
     Dosage: CYCLE 1, PALLIATIVE CHEMOTHERAPY 0.9% NS + AOMINGRUM
     Route: 041
  2. ENDOXAN [Suspect]
     Active Substance: CYCLOPHOSPHAMIDE
     Dosage: CYCLE 2 PALLIATIVE CHEMOTHERAPY, ENDOXAN +  0.9% NS 100ML
     Route: 041
     Dates: start: 20200821, end: 20200821
  3. 0.9% SODIUM CHLORIDE INJECTION [Suspect]
     Active Substance: SODIUM CHLORIDE
     Indication: MEDICATION DILUTION
     Dosage: CYCLE 1 PALLIATIVE CHEMOTHERAPY, 0.9% NS + ENDOXAN
     Route: 041
  4. 0.9% SODIUM CHLORIDE INJECTION [Suspect]
     Active Substance: SODIUM CHLORIDE
     Dosage: CYCLE 1, PALLIATIVE CHEMOTHERAPY, 0.9% NS + EPIRUBICIN HYDROCHLORIDE
     Route: 041
  5. 0.9% SODIUM CHLORIDE INJECTION [Suspect]
     Active Substance: SODIUM CHLORIDE
     Dosage: CYCLE 2 PALLIATIVE CHEMOTHERAPY, 0.9% NS + EPIRUBICIN HYDROCHLORIDE 100 MG
     Route: 041
     Dates: start: 20200821, end: 20200821
  6. EPIRUBICIN HYDROCHLORIDE. [Suspect]
     Active Substance: EPIRUBICIN HYDROCHLORIDE
     Indication: BREAST CANCER FEMALE
     Dosage: CYCLE 1 PALLIATIVE CHEMOTHERAPY, EPIRUBICIN HYDROCHLORIDE + 0.9% NS
     Route: 041
  7. 0.9% SODIUM CHLORIDE INJECTION [Suspect]
     Active Substance: SODIUM CHLORIDE
     Dosage: CYCLE 2 PALLIATIVE CHEMOTHERAPY, 0.9% NS + ENDOXAN 0.7 GRAM
     Route: 041
     Dates: start: 20200821, end: 20200821
  8. AOMINGRUN [Suspect]
     Active Substance: DOCETAXEL
     Dosage: CYCLE 2 PALLIATIVE CHEMOTHERAPY, AOMINGRUM + 0.9% NS 200ML
     Route: 041
     Dates: start: 20200821, end: 20200821
  9. EPIRUBICIN HYDROCHLORIDE. [Suspect]
     Active Substance: EPIRUBICIN HYDROCHLORIDE
     Dosage: CYCLE 2 PALLIATIVE CHEMOTHERAPY, EPIRUBICIN HYDROCHLORIDE + 0.9% NS 100ML
     Route: 041
     Dates: start: 20200821, end: 20200821
  10. ENDOXAN [Suspect]
     Active Substance: CYCLOPHOSPHAMIDE
     Indication: BREAST CANCER FEMALE
     Dosage: CYCLE 1 PALLIATIVE CHEMOTHERAPY, ENDOXAN +  0.9% NS
     Route: 041
  11. 0.9% SODIUM CHLORIDE INJECTION [Suspect]
     Active Substance: SODIUM CHLORIDE
     Dosage: CYCLE 2 PALLIATIVE CHEMOTHERAPY, 0.9% NS + AOMINGRUM 100MG
     Route: 041
     Dates: start: 20200821, end: 20200821
  12. AOMINGRUN [Suspect]
     Active Substance: DOCETAXEL
     Indication: BREAST CANCER FEMALE
     Dosage: CYCLE 1 PALLIATIVE CHEMOTHERAPY, AOMINGRUM + 0.9% NS
     Route: 041

REACTIONS (1)
  - Leukopenia [Recovered/Resolved]

NARRATIVE: CASE EVENT DATE: 20200824
